FAERS Safety Report 8789151 (Version 1)
Quarter: 2012Q4

REPORT INFORMATION
  Report Type: Spontaneous
  Country: US (occurrence: None)
  Receive Date: 20120904
  Receipt Date: 20120904
  Transmission Date: 20130627
  Serious: Yes (Hospitalization)
  Sender: FDA-Public Use
  Company Number: 2012-003112

PATIENT
  Age: 61 Year
  Sex: Male

DRUGS (1)
  1. ASACOL [Suspect]
     Indication: ULCERATIVE COLITIS
     Route: 048

REACTIONS (3)
  - Pericardial effusion [None]
  - Pericarditis [None]
  - Viral infection [None]
